FAERS Safety Report 9098934 (Version 1)
Quarter: 2013Q1

REPORT INFORMATION
  Report Type: Spontaneous
  Country: US (occurrence: US)
  Receive Date: 20130213
  Receipt Date: 20130213
  Transmission Date: 20140127
  Serious: No
  Sender: FDA-Public Use
  Company Number: US-BAYER-2013-018595

PATIENT
  Age: 94 Year
  Sex: Male

DRUGS (2)
  1. ALEVE CAPLET/TABLET,MIDOL EXTENDED RELIEF CAPLET [Suspect]
     Indication: ARTHRITIS
     Dosage: TAB
     Route: 048
  2. TYLENOL NOS [Concomitant]

REACTIONS (1)
  - Drug ineffective [None]
